FAERS Safety Report 5389658-0 (Version None)
Quarter: 2007Q3

REPORT INFORMATION
  Report Type: 
  Country: None (occurrence: None)
  Receive Date: 20070717
  Receipt Date: 20070704
  Transmission Date: 20080115
  Serious: Yes (Hospitalization)
  Sender: FDA-Public Use
  Company Number: JP-AMGEN-US149811

PATIENT
  Sex: Female
  Weight: 46 kg

DRUGS (44)
  1. ENBREL [Suspect]
     Indication: RHEUMATOID ARTHRITIS
     Route: 058
     Dates: start: 20050519, end: 20050623
  2. ENBREL [Suspect]
     Route: 065
     Dates: start: 20050628, end: 20050818
  3. ENBREL [Suspect]
     Dosage: UNSPECIFIED
     Route: 065
     Dates: end: 20070501
  4. VOLTAREN [Suspect]
     Indication: RHEUMATOID ARTHRITIS
     Route: 048
     Dates: end: 20050728
  5. VOLTAREN [Suspect]
     Route: 054
     Dates: start: 20050728, end: 20050818
  6. PREDONINE [Suspect]
     Indication: RHEUMATOID ARTHRITIS
     Route: 048
     Dates: start: 20050317
  7. PREDONINE [Suspect]
     Dosage: DOSE AND FREQUENCY NOT SPECIFIED
     Route: 042
  8. CAMLEED [Concomitant]
     Indication: RHEUMATOID ARTHRITIS
     Route: 048
  9. ISCOTIN [Concomitant]
     Indication: ANTIBIOTIC PROPHYLAXIS
     Route: 048
     Dates: start: 20050106
  10. BAKTAR [Concomitant]
     Indication: PROPHYLAXIS
     Route: 048
  11. ALESION [Concomitant]
     Indication: DRUG HYPERSENSITIVITY
     Route: 048
  12. LIMETHASONE [Concomitant]
     Indication: RHEUMATOID ARTHRITIS
     Dosage: DOSE AND FREQUENCY NOT SPECIFIED
     Route: 042
  13. GASTER [Concomitant]
     Dosage: DOSE AND FREQUENCY NOT SPECIFIED
     Route: 048
  14. NERISONA [Concomitant]
  15. PRIMPERAN INJ [Concomitant]
  16. FERRUM [Concomitant]
     Dosage: DOSE AND FREQUENCY NOT SPECIFIED
     Route: 048
  17. SUCRALFATE [Concomitant]
     Dosage: DOSE AND FREQUENCY NOT SPECIFIED
     Route: 048
  18. LANSOPRAZOLE [Concomitant]
     Dosage: DOSE AND FREQUENCY NOT SPECIFIED
     Route: 048
  19. NAUZELIN [Concomitant]
     Dosage: DOSE AND FREQUENCY NOT SPECIFIED
     Route: 054
  20. ALLOID [Concomitant]
     Dosage: DOSE AND FREQUENCY NOT SPECIFIED
     Route: 048
  21. PARIET [Concomitant]
     Dosage: DOSE AND FREQUENCY NOT SPECIFIED
     Route: 048
  22. LAXOBERON [Concomitant]
     Dosage: DOSE AND FREQUENCY NOT SPECIFIED
     Route: 048
  23. GLUCOSE [Concomitant]
  24. DOGMATYL [Concomitant]
  25. DALACIN TOPICO [Concomitant]
  26. MAGNESIUM OXIDE [Concomitant]
  27. FUNGIZONE [Concomitant]
     Dosage: DOSE AND FREQUENCY NOT SPECIFIED
     Route: 048
  28. LECTISOL [Concomitant]
     Dosage: DOSE AND FREQUENCY NOT SPECIFIED
     Route: 048
  29. FESIN [Concomitant]
     Dosage: DOSE AND FREQUENCY NOT SPECIFIED
     Route: 042
  30. VITAMEDIN [Concomitant]
  31. OMEPRAL [Concomitant]
  32. CEFOTIAM HYDROCHLORIDE [Concomitant]
     Dosage: DOSE AND FREQUENCY NOT SPECIFIED
     Route: 042
  33. PENTAGIN [Concomitant]
  34. HYDROXYZINE [Concomitant]
  35. ERYTHROCIN [Concomitant]
  36. SOLITA-T1 [Concomitant]
  37. SOLITA-T3 [Concomitant]
  38. LACTEC G [Concomitant]
     Dosage: DOSE AND FREQUENCY NOT SPECIFIED
     Route: 051
  39. LACTEC [Concomitant]
     Dosage: DOSE AND FREQUENCY NOT SPECIFIED
     Route: 051
  40. DRENISON [Concomitant]
  41. PROGRAF [Concomitant]
     Indication: RHEUMATOID ARTHRITIS
     Route: 048
     Dates: start: 20050421, end: 20050525
  42. PROGRAF [Concomitant]
     Route: 048
     Dates: start: 20050526, end: 20050602
  43. PROGRAF [Concomitant]
     Route: 048
     Dates: start: 20051005, end: 20051019
  44. PROGRAF [Concomitant]
     Route: 048
     Dates: start: 20051020

REACTIONS (2)
  - BACTERIAL INFECTION [None]
  - GASTRIC ULCER [None]
